FAERS Safety Report 5905067-7 (Version None)
Quarter: 2008Q3

REPORT INFORMATION
  Report Type: 
  Country: None (occurrence: None)
  Receive Date: 20080909
  Receipt Date: 20071114
  Transmission Date: 20090109
  Serious: Yes (Hospitalization)
  Sender: FDA-Public Use
  Company Number: 163-20785-07110875

PATIENT
  Age: 14 Year
  Sex: Female
  Weight: 58.9676 kg

DRUGS (8)
  1. THALOMID [Suspect]
     Indication: NEUROFIBROMATOSIS
     Dosage: 50 MG, 1 IN 1 D, ORAL
     Route: 048
     Dates: start: 20071011
  2. CYMBALTA [Concomitant]
  3. NEURONTIN [Concomitant]
  4. ZANTAC 150 [Concomitant]
  5. MORPHINE [Concomitant]
  6. OXYCONTIN [Concomitant]
  7. METHADONE HCL [Concomitant]
  8. OXYCODONE HCL [Concomitant]

REACTIONS (2)
  - GAIT DISTURBANCE [None]
  - PAIN [None]
